FAERS Safety Report 10522254 (Version 3)
Quarter: 2015Q1

REPORT INFORMATION
  Report Type: Spontaneous
  Country: JP (occurrence: None)
  Receive Date: 20141014
  Receipt Date: 20150107
  Transmission Date: 20150720
  Serious: Yes (Death, Hospitalization, Other)
  Sender: FDA-Public Use
  Company Number: ABR_01836_2014

PATIENT
  Age: 54 Year
  Sex: Male

DRUGS (1)
  1. GLIADEL [Suspect]
     Active Substance: CARMUSTINE
     Indication: MALIGNANT GLIOMA
     Dosage: 8 DF 1X  INTRACEREBRAL
     Dates: start: 20130704, end: 20131010

REACTIONS (3)
  - Malignant glioma [None]
  - Malignant neoplasm progression [None]
  - Paralysis [None]

NARRATIVE: CASE EVENT DATE: 20130704
